FAERS Safety Report 6228090-4 (Version None)
Quarter: 2009Q2

REPORT INFORMATION
  Report Type: 
  Country: None (occurrence: None)
  Receive Date: 20090610
  Receipt Date: 20090610
  Transmission Date: 20091009
  Serious: Yes (Disabling)
  Sender: FDA-Public Use
  Company Number: None

PATIENT
  Age: 46 Year
  Sex: Female
  Weight: 58.9676 kg

DRUGS (3)
  1. TYSABRI [Suspect]
     Indication: MULTIPLE SCLEROSIS
     Dosage: 1 MONTHLY INTRAVENOUS
     Route: 042
     Dates: start: 20070209, end: 20081029
  2. VESICARE [Concomitant]
  3. TIZANIDINE [Concomitant]

REACTIONS (1)
  - DRUG HYPERSENSITIVITY [None]
